FAERS Safety Report 8557648-2 (Version None)
Quarter: 2012Q3

REPORT INFORMATION
  Report Type: 
  Country: None (occurrence: None)
  Receive Date: 20120801
  Receipt Date: 20120725
  Transmission Date: 20120928
  Serious: Yes (Hospitalization)
  Sender: FDA-Public Use
  Company Number: IT-ROCHE-1095343

PATIENT
  Sex: Male

DRUGS (2)
  1. XOLAIR [Suspect]
     Indication: ASTHMA
     Route: 058
     Dates: start: 20091102, end: 20120627
  2. FLUTICASONE PROPIONATE/SALMETEROL [Concomitant]

REACTIONS (1)
  - SUBARACHNOID HAEMORRHAGE [None]
